FAERS Safety Report 9208803 (Version 1)
Quarter: 2013Q2

REPORT INFORMATION
  Report Type: Spontaneous
  Country: US (occurrence: US)
  Receive Date: 20130404
  Receipt Date: 20130404
  Transmission Date: 20140414
  Serious: Yes (Other)
  Sender: FDA-Public Use
  Company Number: US-PFIZER INC-2013104611

PATIENT
  Age: 49 Year
  Sex: Male
  Weight: 88.44 kg

DRUGS (4)
  1. LIPITOR [Suspect]
     Indication: BLOOD CHOLESTEROL INCREASED
     Dosage: 10 MG, 1X/DAY
     Route: 048
  2. QUINAPRIL [Concomitant]
     Dosage: 20 MG, 1X/DAY
  3. TRILIPIX [Concomitant]
     Dosage: 135 MG, 1X/DAY
  4. ALPRAZOLAM [Concomitant]
     Dosage: 0.5 MG, 1X/DAY

REACTIONS (2)
  - Depression [Unknown]
  - Anxiety [Unknown]
